FAERS Safety Report 4408604-7 (Version None)
Quarter: 2004Q3

REPORT INFORMATION
  Report Type: 
  Country: None (occurrence: None)
  Receive Date: 20040723
  Receipt Date: 20040712
  Transmission Date: 20050211
  Serious: Yes (Hospitalization)
  Sender: FDA-Public Use
  Company Number: 2004220833DE

PATIENT
  Age: 57 Year
  Sex: Female
  Weight: 107 kg

DRUGS (6)
  1. EPIRUBICIN [Suspect]
     Indication: BREAST CANCER
     Dosage: 18 MG, UNK; IV
     Route: 042
     Dates: start: 20040504
  2. COMPARATOR-DOCETAXEL (DOCETAXEL) INJECTION [Suspect]
     Indication: BREAST CANCER
     Dosage: 200 MG, CYCLIC; IV
     Route: 042
     Dates: start: 20040616
  3. CYCLOPHOSPHAMIDE [Suspect]
     Indication: BREAST CANCER
     Dosage: 1200 MG, UNK; IV
     Route: 042
     Dates: start: 20040504
  4. LORZAAR PLUS [Concomitant]
  5. VERAPAMIL [Concomitant]
  6. SIOFOR [Concomitant]

REACTIONS (4)
  - DEHYDRATION [None]
  - DYSGEUSIA [None]
  - GENERAL PHYSICAL HEALTH DETERIORATION [None]
  - NAUSEA [None]
